FAERS Safety Report 9438516 (Version 1)
Quarter: 2013Q3

REPORT INFORMATION
  Report Type: Report from Study
  Country: US (occurrence: US)
  Receive Date: 20130802
  Receipt Date: 20130802
  Transmission Date: 20140515
  Serious: Yes (Other)
  Sender: FDA-Public Use
  Company Number: US-JNJFOC-20130716834

PATIENT
  Age: 76 Year
  Sex: Female
  Weight: 90.72 kg

DRUGS (5)
  1. REMICADE [Suspect]
     Indication: RHEUMATOID ARTHRITIS
     Route: 042
     Dates: start: 201306
  2. METHOTREXATE [Concomitant]
     Indication: RHEUMATOID ARTHRITIS
     Dosage: 2.5 MG
     Route: 048
     Dates: start: 1993
  3. NABUMETONE [Concomitant]
     Indication: SWELLING
     Route: 048
     Dates: start: 1993
  4. NABUMETONE [Concomitant]
     Indication: PAIN
     Route: 048
     Dates: start: 1993
  5. PREDNISONE [Concomitant]
     Indication: RHEUMATOID ARTHRITIS
     Route: 048
     Dates: start: 20130521

REACTIONS (1)
  - Cholelithiasis [Not Recovered/Not Resolved]
